FAERS Safety Report 5584298-2 (Version None)
Quarter: 2008Q1

REPORT INFORMATION
  Report Type: 
  Country: None (occurrence: None)
  Receive Date: 20080108
  Receipt Date: 20080107
  Transmission Date: 20080703
  Serious: Yes (Other)
  Sender: FDA-Public Use
  Company Number: D0054888A

PATIENT
  Age: 17 Year
  Sex: Female
  Weight: 61 kg

DRUGS (2)
  1. LAMICTAL [Suspect]
     Indication: EPILEPSY
     Dosage: 200MG PER DAY
     Route: 048
     Dates: start: 20060101, end: 20071022
  2. URBASON [Concomitant]
     Dosage: 4MG PER DAY
     Route: 048

REACTIONS (3)
  - ABDOMINAL PAIN [None]
  - COLITIS ULCERATIVE [None]
  - DIARRHOEA [None]
